FAERS Safety Report 8827768 (Version 1)
Quarter: 2012Q4

REPORT INFORMATION
  Report Type: 
  Country: US (occurrence: US)
  Receive Date: 20121008
  Receipt Date: 20121008
  Transmission Date: 20130627
  Serious: No
  Sender: FDA-Public Use
  Company Number: US-PFIZER INC-2012246132

PATIENT

DRUGS (2)
  1. ADVIL CONGESTION RELIEF [Suspect]
     Indication: PAIN
     Dosage: UNK
  2. ADVIL CONGESTION RELIEF [Suspect]
     Indication: NASAL CONGESTION

REACTIONS (1)
  - Nausea [Unknown]
